FAERS Safety Report 5227084-5 (Version None)
Quarter: 2007Q1

REPORT INFORMATION
  Report Type: 
  Country: None (occurrence: None)
  Receive Date: 20070201
  Receipt Date: 20070201
  Transmission Date: 20070707
  Serious: No
  Sender: FDA-Public Use
  Company Number: None

PATIENT
  Age: 54 Year
  Sex: Male

DRUGS (2)
  1. TYSABRI [Suspect]
     Dosage: 300 MG
  2. BACLOFEN [Concomitant]

REACTIONS (7)
  - CONFUSIONAL STATE [None]
  - FLUSHING [None]
  - INFUSION RELATED REACTION [None]
  - LOSS OF CONSCIOUSNESS [None]
  - MEMORY IMPAIRMENT [None]
  - MICTURITION URGENCY [None]
  - NAUSEA [None]
